FAERS Safety Report 9073491 (Version 1)
Quarter: 2013Q1

REPORT INFORMATION
  Report Type: Report from Study
  Country: US (occurrence: US)
  Receive Date: 20130129
  Receipt Date: 20130129
  Transmission Date: 20140127
  Serious: No
  Sender: FDA-Public Use
  Company Number: US-ABBOTT-12P-163-0937495-00

PATIENT
  Age: 62 Year
  Sex: Male

DRUGS (10)
  1. HUMIRA 40 MG/0.8 ML PEN [Suspect]
     Indication: PSORIATIC ARTHROPATHY
     Dates: start: 20120406
  2. DILTIAZEM 24 ER [Concomitant]
     Indication: ANGINA PECTORIS
     Dosage: 180MG DAILY
  3. DILTIAZEM 24 ER [Concomitant]
     Indication: CORONARY ARTERY OCCLUSION
  4. ISOSORBIDE [Concomitant]
     Indication: ANGINA PECTORIS
  5. METOPROLOL [Concomitant]
     Indication: HYPERTENSION
     Dosage: 50MG 1 1/2 TWICE DAILY
  6. LIPITOR [Concomitant]
     Indication: BLOOD CHOLESTEROL INCREASED
     Dosage: 40MG DAILY
  7. BABY ASPIRIN [Concomitant]
     Indication: CARDIAC DISORDER
     Dosage: 81MG DAILY
  8. FOLIC ACID [Concomitant]
     Indication: SUPPLEMENTATION THERAPY
     Dosage: 1MG DAILY
  9. MELOXICAM [Concomitant]
     Indication: ARTHRITIS
     Dosage: 15MG DAILY
  10. METHOTREXATE [Concomitant]
     Indication: PSORIATIC ARTHROPATHY

REACTIONS (2)
  - Injection site pain [Recovering/Resolving]
  - Injection site pain [Recovering/Resolving]
